FAERS Safety Report 24290022 (Version 4)
Quarter: 2024Q4

REPORT INFORMATION
  Report Type: Spontaneous
  Country: US (occurrence: US)
  Receive Date: 20240906
  Receipt Date: 20241025
  Transmission Date: 20250115
  Serious: No
  Sender: AMGEN
  Company Number: US-AMGEN-USASP2024175735

PATIENT
  Age: 69 Year
  Sex: Female

DRUGS (1)
  1. TEPEZZA [Suspect]
     Active Substance: TEPROTUMUMAB-TRBW
     Indication: Endocrine ophthalmopathy
     Dosage: 1 DOSAGE FORM, Q3WK (1X EVERY 3 WEEKS FOR 8 INFUSIONS)
     Route: 042
     Dates: start: 20240628, end: 20240924

REACTIONS (15)
  - Pruritus [Unknown]
  - Dry skin [Unknown]
  - Nausea [Unknown]
  - Diarrhoea [Unknown]
  - Vomiting [Unknown]
  - Chromaturia [Unknown]
  - Taste disorder [Unknown]
  - Parosmia [Unknown]
  - Blood pressure increased [Unknown]
  - Blood glucose increased [Unknown]
  - Headache [Unknown]
  - Pain in extremity [Unknown]
  - Arthralgia [Unknown]
  - Skin exfoliation [Unknown]
  - Therapy interrupted [Unknown]

NARRATIVE: CASE EVENT DATE: 20240101
